FAERS Safety Report 7637666-9 (Version None)
Quarter: 2011Q3

REPORT INFORMATION
  Report Type: 
  Country: None (occurrence: None)
  Receive Date: 20110726
  Receipt Date: 20110509
  Transmission Date: 20111222
  Serious: Yes (Hospitalization)
  Sender: FDA-Public Use
  Company Number: US-AMGEN-USASP2011024151

PATIENT
  Age: 90 Year
  Sex: Male

DRUGS (3)
  1. ARANESP [Suspect]
     Indication: PRODUCT USED FOR UNKNOWN INDICATION
     Dosage: UNK
     Dates: start: 20110201
  2. PROCRIT [Suspect]
     Indication: PRODUCT USED FOR UNKNOWN INDICATION
  3. REVLIMID [Suspect]
     Indication: MYELODYSPLASTIC SYNDROME
     Dosage: 5 MG, UNK
     Route: 048
     Dates: start: 20091221

REACTIONS (1)
  - DEEP VEIN THROMBOSIS [None]
